FAERS Safety Report 6684476-5 (Version None)
Quarter: 2010Q2

REPORT INFORMATION
  Report Type: 
  Country: None (occurrence: None)
  Receive Date: 20100416
  Receipt Date: 20100409
  Transmission Date: 20101027
  Serious: Yes (Other)
  Sender: FDA-Public Use
  Company Number: NL-BRISTOL-MYERS SQUIBB COMPANY-15057417

PATIENT
  Age: 87 Year
  Sex: Male

DRUGS (1)
  1. HYDROXYCARBAMIDE [Suspect]
     Indication: THROMBOCYTOSIS

REACTIONS (2)
  - PERIODONTAL DISEASE [None]
  - TOOTH LOSS [None]
